FAERS Safety Report 7372352-4 (Version None)
Quarter: 2011Q1

REPORT INFORMATION
  Report Type: 
  Country: None (occurrence: None)
  Receive Date: 20110324
  Receipt Date: 20110317
  Transmission Date: 20110831
  Serious: Yes (Other)
  Sender: FDA-Public Use
  Company Number: B0707863A

PATIENT
  Sex: Male
  Weight: 90 kg

DRUGS (1)
  1. AUGMENTIN [Suspect]
     Indication: TONSILLITIS
     Dosage: 1G TWICE PER DAY
     Route: 048
     Dates: start: 20110112

REACTIONS (2)
  - SOMNOLENCE [None]
  - GASTRITIS [None]
